FAERS Safety Report 4485309-8 (Version None)
Quarter: 2004Q3

REPORT INFORMATION
  Report Type: 
  Country: None (occurrence: None)
  Receive Date: 20040921
  Receipt Date: 20040512
  Transmission Date: 20050211
  Serious: Yes (Hospitalization)
  Sender: FDA-Public Use
  Company Number: 163-20785-04050357

PATIENT
  Age: 58 Year
  Sex: Male

DRUGS (23)
  1. THALOMID [Suspect]
     Indication: MULTIPLE MYELOMA
     Dosage: 50 MG, QD, ORAL; 100MG, QD, ORAL; 100MG, ORAL
     Route: 048
     Dates: start: 20030824, end: 20030824
  2. THALOMID [Suspect]
     Indication: MULTIPLE MYELOMA
     Dosage: 50 MG, QD, ORAL; 100MG, QD, ORAL; 100MG, ORAL
     Route: 048
     Dates: start: 20031201, end: 20031228
  3. THALOMID [Suspect]
     Indication: MULTIPLE MYELOMA
     Dosage: 50 MG, QD, ORAL; 100MG, QD, ORAL; 100MG, ORAL
     Route: 048
     Dates: start: 20031229, end: 20040406
  4. THALOMID [Suspect]
     Dosage: 200MG, ORAL
     Route: 048
     Dates: start: 20010926, end: 20011117
  5. THALOMID [Suspect]
     Dosage: 200MG, ORAL
     Route: 048
     Dates: start: 20011208, end: 20021229
  6. THALOMID [Suspect]
     Dosage: 200MG, ORAL
     Route: 048
     Dates: start: 20030109, end: 20030304
  7. THALOMID [Suspect]
     Dosage: 200MG, ORAL
     Route: 048
     Dates: start: 20300401, end: 20030427
  8. THALOMID [Suspect]
     Dosage: 200MG, ORAL
     Route: 048
     Dates: start: 20030506, end: 20030603
  9. THALOMID [Suspect]
     Dosage: 200MG, ORAL
     Route: 048
     Dates: start: 20030610, end: 20030707
  10. THALOMID [Suspect]
     Dosage: 200MG, ORAL
     Route: 048
     Dates: start: 20030718, end: 20030718
  11. THALOMID [Suspect]
     Dosage: 100MG, ORAL; 300MG, ORAL; 400MG, ORAL
     Route: 048
     Dates: start: 20010813, end: 20010904
  12. THALOMID [Suspect]
     Dosage: 100MG, ORAL; 300MG, ORAL; 400MG, ORAL
     Route: 048
     Dates: start: 20010905, end: 20010905
  13. THALOMID [Suspect]
     Dosage: 100MG, ORAL; 300MG, ORAL; 400MG, ORAL
     Route: 048
     Dates: start: 20010907, end: 20010925
  14. DEXAMETHASONE [Suspect]
     Indication: MULTIPLE MYELOMA
     Dosage: 20 MG, DAYS 1-4, 9-12, 17-20 EVERY 3 MONTHS
     Dates: start: 20040331, end: 20040419
  15. INTRON A [Suspect]
     Indication: MULTIPLE MYELOMA
     Dosage: 2 MU/M^2, 3X WEEKLY, SUBCUTANEOUS
     Route: 058
     Dates: start: 20040331, end: 20040430
  16. SYNTHROID [Concomitant]
  17. ACYCLOVIR [Concomitant]
  18. RANITIDINE [Concomitant]
  19. ZOLOFT [Concomitant]
  20. PHOSLO [Concomitant]
  21. DIGOXIN (DOGOXIN) [Concomitant]
  22. TEQUIN [Concomitant]
  23. DIFLUCAN [Concomitant]

REACTIONS (2)
  - GASTROINTESTINAL INFECTION [None]
  - INTESTINAL PERFORATION [None]
